FAERS Safety Report 14648092 (Version 2)
Quarter: 2018Q1

REPORT INFORMATION
  Report Type: Spontaneous
  Country: US (occurrence: US)
  Receive Date: 20180316
  Receipt Date: 20180327
  Transmission Date: 20180509
  Serious: Yes (Death, Hospitalization)
  Sender: FDA-Public Use
  Company Number: US-JNJFOC-20180317470

PATIENT
  Age: 87 Year
  Sex: Female
  Weight: 58 kg

DRUGS (12)
  1. IMBRUVICA [Suspect]
     Active Substance: IBRUTINIB
     Indication: WALDENSTROM^S MACROGLOBULINAEMIA
     Route: 048
     Dates: start: 20170104
  2. IRON [Concomitant]
     Active Substance: IRON
  3. IMBRUVICA [Suspect]
     Active Substance: IBRUTINIB
     Indication: WALDENSTROM^S MACROGLOBULINAEMIA
     Route: 048
     Dates: start: 20161223
  4. COUMADIN [Concomitant]
     Active Substance: WARFARIN SODIUM
  5. HYDROCODONE BITARTRATE AND ACETAMINOPHEN [Concomitant]
     Active Substance: ACETAMINOPHEN\HYDROCODONE BITARTRATE
  6. QUETIAPINE. [Concomitant]
     Active Substance: QUETIAPINE
  7. LIPITOR [Concomitant]
     Active Substance: ATORVASTATIN CALCIUM
  8. VITAMIN B12 [Concomitant]
     Active Substance: CYANOCOBALAMIN
  9. GABAPENTIN. [Concomitant]
     Active Substance: GABAPENTIN
  10. METOPROLOL. [Concomitant]
     Active Substance: METOPROLOL
  11. CHLORHEXIDINE [Concomitant]
     Active Substance: CHLORHEXIDINE
  12. DONEPEZIL. [Concomitant]
     Active Substance: DONEPEZIL

REACTIONS (3)
  - Urinary tract infection [Not Recovered/Not Resolved]
  - Pancreatitis [Not Recovered/Not Resolved]
  - Pancreatic carcinoma [Fatal]

NARRATIVE: CASE EVENT DATE: 20180305
